FAERS Safety Report 6335706-0 (Version None)
Quarter: 2009Q3

REPORT INFORMATION
  Report Type: 
  Country: None (occurrence: None)
  Receive Date: 20090828
  Receipt Date: 20090804
  Transmission Date: 20100115
  Serious: Yes (Hospitalization)
  Sender: FDA-Public Use
  Company Number: 2009-190760-NL

PATIENT
  Age: 30 Year
  Sex: Female
  Weight: 59 kg

DRUGS (1)
  1. NUVARING [Suspect]
     Indication: CONTRACEPTION
     Dates: start: 20010101, end: 20060101

REACTIONS (14)
  - ABDOMINAL PAIN [None]
  - ABORTION INCOMPLETE [None]
  - ABORTION SPONTANEOUS [None]
  - CHEST PAIN [None]
  - DRUG EXPOSURE DURING PREGNANCY [None]
  - DYSPEPSIA [None]
  - GASTROENTERITIS VIRAL [None]
  - INTRA-UTERINE DEATH [None]
  - PELVIC PAIN [None]
  - PREGNANCY WITH CONTRACEPTIVE DEVICE [None]
  - THROMBOSIS [None]
  - TONGUE ULCERATION [None]
  - VAGINAL HAEMORRHAGE [None]
  - VARICOSE VEIN [None]
